FAERS Safety Report 16317767 (Version 1)
Quarter: 2019Q2

REPORT INFORMATION
  Report Type: Spontaneous
  Country: DE (occurrence: DE)
  Receive Date: 20190516
  Receipt Date: 20190516
  Transmission Date: 20190711
  Serious: Yes (Disabling)
  Sender: FDA-Public Use
  Company Number: DE-DRREDDYS-GER/GER/19/0110114

PATIENT
  Age: 55 Year
  Sex: Male
  Weight: 102 kg

DRUGS (11)
  1. EZETIMIBE. [Concomitant]
     Active Substance: EZETIMIBE
     Indication: PERIPHERAL ARTERIAL OCCLUSIVE DISEASE
  2. SIMVASTATIN. [Suspect]
     Active Substance: SIMVASTATIN
     Indication: HYPERCHOLESTEROLAEMIA
  3. ASPIRIN. [Concomitant]
     Active Substance: ASPIRIN
     Indication: PRODUCT USED FOR UNKNOWN INDICATION
     Dosage: 1-0-0-0
  4. VALSACOR 160 MG [Concomitant]
     Indication: HYPERTENSION
     Dosage: 0.5-0-0.5-0
  5. ATORVASTATIN [Suspect]
     Active Substance: ATORVASTATIN
     Indication: PERIPHERAL ARTERIAL OCCLUSIVE DISEASE
  6. NEBIVOLOL AL 5 MG TABLETTEN [Concomitant]
     Indication: HYPERTENSION
     Dosage: 0.5-0-0-0
  7. PRAVASTATIN. [Suspect]
     Active Substance: PRAVASTATIN
     Indication: PERIPHERAL ARTERIAL OCCLUSIVE DISEASE
  8. ATORVASTATIN [Suspect]
     Active Substance: ATORVASTATIN
     Indication: HYPERCHOLESTEROLAEMIA
     Dates: start: 201309
  9. SIMVASTATIN. [Suspect]
     Active Substance: SIMVASTATIN
     Indication: PERIPHERAL ARTERIAL OCCLUSIVE DISEASE
  10. PRAVASTATIN. [Suspect]
     Active Substance: PRAVASTATIN
     Indication: HYPERCHOLESTEROLAEMIA
  11. EZETIMIBE. [Concomitant]
     Active Substance: EZETIMIBE
     Indication: HYPERCHOLESTEROLAEMIA

REACTIONS (2)
  - Impaired work ability [Not Recovered/Not Resolved]
  - Myalgia [Recovered/Resolved with Sequelae]
